FAERS Safety Report 4305573-5 (Version None)
Quarter: 2004Q1

REPORT INFORMATION
  Report Type: 
  Country: None (occurrence: None)
  Receive Date: 20040226
  Receipt Date: 20031203
  Transmission Date: 20041129
  Serious: No
  Sender: FDA-Public Use
  Company Number: US-BRISTOL-MYERS SQUIBB COMPANY-12449302

PATIENT
  Sex: Male

DRUGS (2)
  1. ABILIFY [Suspect]
     Indication: PARANOIA
     Dosage: 15 MG FOR THE PAST 2-3 MONTHS
     Route: 048
     Dates: start: 20030101
  2. ABILIFY [Suspect]
     Indication: PSYCHOTIC DISORDER
     Dosage: 15 MG FOR THE PAST 2-3 MONTHS
     Route: 048
     Dates: start: 20030101

REACTIONS (1)
  - SKIN DISCOLOURATION [None]
